FAERS Safety Report 25231592 (Version 6)
Quarter: 2025Q2

REPORT INFORMATION
  Report Type: Spontaneous
  Country: PT (occurrence: PT)
  Receive Date: 20250423
  Receipt Date: 20250627
  Transmission Date: 20250717
  Serious: Yes (Hospitalization, Other)
  Sender: NOVARTIS
  Company Number: PT-MYLANLABS-2025M1025354

PATIENT
  Age: 4 Year
  Sex: Female
  Weight: 21 kg

DRUGS (9)
  1. CARBAMAZEPINE [Suspect]
     Active Substance: CARBAMAZEPINE
     Indication: Product used for unknown indication
     Route: 065
  2. PHENYTOIN SODIUM [Suspect]
     Active Substance: PHENYTOIN SODIUM
     Indication: Epilepsy
     Dosage: 78 MG, BID (78 MILLIGRAM, BID (EVERY 12 HOURS))
     Route: 048
     Dates: start: 20230505
  3. PHENYTOIN SODIUM [Suspect]
     Active Substance: PHENYTOIN SODIUM
     Dosage: 12 ML, BID (12 MILLILITER, BID (2 TIMES PER DAY)
     Route: 065
     Dates: start: 202503
  4. PHENYTOIN SODIUM [Suspect]
     Active Substance: PHENYTOIN SODIUM
     Route: 065
  5. ZONISAMIDE [Concomitant]
     Active Substance: ZONISAMIDE
     Indication: Product used for unknown indication
     Route: 065
  6. ZONISAMIDE [Concomitant]
     Active Substance: ZONISAMIDE
     Route: 065
  7. PHENOBARBITAL [Concomitant]
     Active Substance: PHENOBARBITAL
     Indication: Product used for unknown indication
     Dosage: 30 MG, QD, (30 MILLIGRAM, PM (AT NIGHT))
     Route: 065
  8. PHENOBARBITAL [Concomitant]
     Active Substance: PHENOBARBITAL
     Dosage: 15 MG, QD, (15 MILLIGRAM, AM (IN THE MORNING))
     Route: 065
  9. ACYCLOVIR [Concomitant]
     Active Substance: ACYCLOVIR
     Indication: Product used for unknown indication
     Route: 065

REACTIONS (15)
  - Fall [Unknown]
  - Gait disturbance [Unknown]
  - Unresponsive to stimuli [Unknown]
  - Eye disorder [Unknown]
  - Accidental overdose [Unknown]
  - Toxicity to various agents [Unknown]
  - Drug level increased [Unknown]
  - Ataxia [Unknown]
  - Product colour issue [Unknown]
  - Suspected product quality issue [Unknown]
  - Skin reaction [Unknown]
  - Muscular weakness [Unknown]
  - Product physical issue [Unknown]
  - Wrong technique in product usage process [Unknown]
  - Product storage error [Unknown]

NARRATIVE: CASE EVENT DATE: 20250301
